FAERS Safety Report 8989397 (Version 1)
Quarter: 2012Q4

REPORT INFORMATION
  Report Type: Report from Study
  Country: DE (occurrence: DE)
  Receive Date: 20121227
  Receipt Date: 20121227
  Transmission Date: 20130627
  Serious: Yes (Other)
  Sender: FDA-Public Use
  Company Number: DE-ROCHE-1169251

PATIENT
  Age: 67 Year
  Sex: Female
  Weight: 76 kg

DRUGS (12)
  1. TOCILIZUMAB [Suspect]
     Indication: POLYARTHRITIS
     Dosage: starting dose: 8 mg/kg, total monthly dose: 600 mg
     Route: 042
     Dates: start: 20100215
  2. TOCILIZUMAB [Suspect]
     Route: 042
     Dates: start: 20101028
  3. TOCILIZUMAB [Suspect]
     Route: 042
     Dates: start: 20101124
  4. TOCILIZUMAB [Suspect]
     Route: 042
     Dates: start: 20101221
  5. TOCILIZUMAB [Suspect]
     Route: 042
     Dates: start: 20100902
  6. TOCILIZUMAB [Suspect]
     Route: 042
     Dates: start: 20111220
  7. TOCILIZUMAB [Suspect]
     Route: 042
     Dates: start: 20111123
  8. TOCILIZUMAB [Suspect]
     Route: 042
     Dates: start: 20110927
  9. TOCILIZUMAB [Suspect]
     Route: 042
     Dates: start: 20110830
  10. CORTICOSTEROIDS (UNK INGREDIENTS) [Concomitant]
  11. PREDNISOLON [Concomitant]
     Route: 048
  12. TILIDIN [Concomitant]
     Route: 048

REACTIONS (7)
  - Basal cell carcinoma [Unknown]
  - Extrasystoles [Unknown]
  - Pyrexia [Recovering/Resolving]
  - Prurigo [Recovering/Resolving]
  - Rectal tenesmus [Recovering/Resolving]
  - Actinic keratosis [Recovering/Resolving]
  - Headache [Recovering/Resolving]
